FAERS Safety Report 6531303-2 (Version None)
Quarter: 2010Q1

REPORT INFORMATION
  Report Type: 
  Country: None (occurrence: None)
  Receive Date: 20100108
  Receipt Date: 20090730
  Transmission Date: 20100710
  Serious: Yes (Death, Other)
  Sender: FDA-Public Use
  Company Number: ES-CELGENEUS-144-50794-09072092

PATIENT
  Sex: Female

DRUGS (1)
  1. VIDAZA [Suspect]
     Route: 058

REACTIONS (3)
  - ACUTE LEUKAEMIA [None]
  - BRONCHOPNEUMONIA [None]
  - FEBRILE NEUTROPENIA [None]
